FAERS Safety Report 10012239 (Version 3)
Quarter: 2014Q2

REPORT INFORMATION
  Report Type: Spontaneous
  Country: US (occurrence: US)
  Receive Date: 20140312
  Receipt Date: 20140421
  Transmission Date: 20141212
  Serious: No
  Sender: FDA-Public Use
  Company Number: US-PFIZER INC-2014068221

PATIENT
  Age: 79 Year
  Sex: Female
  Weight: 60.77 kg

DRUGS (4)
  1. VERAPAMIL HCL [Suspect]
     Indication: HYPERTENSION
     Dosage: 240 MG, 2X/DAY
     Dates: start: 2011, end: 2011
  2. ARMOUR THYROID [Concomitant]
     Indication: THYROIDECTOMY
     Dosage: 90 MG, DAILY (60 MG AM AND 30 MG PM)
  3. MAXZIDE [Concomitant]
     Dosage: 75-50 MG, 1X/DAY
  4. METFORMIN [Concomitant]
     Dosage: 500 MG, 2X/DAY

REACTIONS (5)
  - Chest pain [Recovered/Resolved]
  - Dyspnoea [Recovered/Resolved]
  - Drug intolerance [Unknown]
  - Chest discomfort [Recovered/Resolved]
  - Hypersensitivity [Unknown]
